FAERS Safety Report 4832488-6 (Version None)
Quarter: 2005Q4

REPORT INFORMATION
  Report Type: 
  Country: None (occurrence: None)
  Receive Date: 20051121
  Receipt Date: 20051110
  Transmission Date: 20060501
  Serious: Yes (Hospitalization)
  Sender: FDA-Public Use
  Company Number: FR-NOVOPROD-248511

PATIENT
  Age: 74 Year
  Sex: Male
  Weight: 58 kg

DRUGS (6)
  1. MIXTARD HUMAN 70/30 [Suspect]
     Indication: DIABETES MELLITUS
     Dosage: UNK, UNK
     Route: 058
     Dates: end: 20050521
  2. CORDARONE [Concomitant]
     Dosage: 200 MG, UNK
     Route: 048
     Dates: end: 20050523
  3. PREVISCAN [Concomitant]
     Route: 048
     Dates: end: 20050522
  4. AMLOR [Concomitant]
     Dates: end: 20050520
  5. HYPERIUM [Concomitant]
     Route: 048
     Dates: end: 20050520
  6. COTAREG ^NOVARTIS^ [Concomitant]
     Route: 048

REACTIONS (3)
  - HYPOGLYCAEMIA [None]
  - PULMONARY FIBROSIS [None]
  - RENAL FAILURE [None]
